FAERS Safety Report 15940194 (Version 2)
Quarter: 2020Q4

REPORT INFORMATION
  Report Type: Spontaneous
  Country: US (occurrence: US)
  Receive Date: 20190208
  Receipt Date: 20201012
  Transmission Date: 20210113
  Serious: Yes (Disabling)
  Sender: FDA-Public Use
  Company Number: US-TEVA-2019-US-1008372

PATIENT
  Age: 43 Year
  Sex: Female

DRUGS (2)
  1. CYTOXAN [Concomitant]
     Active Substance: CYCLOPHOSPHAMIDE
  2. DOCETAXEL WINTHROP [Suspect]
     Active Substance: DOCETAXEL
     Indication: BREAST CANCER FEMALE
     Dosage: DOSAGE: 130 MG, NUMBER OF CYCLES: 04, FREQUENCY: EVERY THREE WEEKS
     Route: 065
     Dates: start: 20130530, end: 20130806

REACTIONS (3)
  - Alopecia [Not Recovered/Not Resolved]
  - Hair disorder [Not Recovered/Not Resolved]
  - Madarosis [Not Recovered/Not Resolved]

NARRATIVE: CASE EVENT DATE: 20130917
